FAERS Safety Report 16872767 (Version 1)
Quarter: 2019Q4

REPORT INFORMATION
  Report Type: Spontaneous
  Country: CH (occurrence: CH)
  Receive Date: 20191001
  Receipt Date: 20191001
  Transmission Date: 20200122
  Serious: Yes (Other)
  Sender: FDA-Public Use
  Company Number: CH-TEVA-2019-CH-1116283

PATIENT
  Sex: Female

DRUGS (1)
  1. RANITIDIN-MEPHA 150MG [Suspect]
     Active Substance: RANITIDINE HYDROCHLORIDE
     Indication: PRODUCT USED FOR UNKNOWN INDICATION
     Dosage: FOR ABOUT 3 MONTHS

REACTIONS (9)
  - Abdominal pain upper [Unknown]
  - Feeling abnormal [Unknown]
  - Drug-induced liver injury [Unknown]
  - Nausea [Unknown]
  - Pain [Unknown]
  - Vomiting [Unknown]
  - Product contamination [Unknown]
  - Renal pain [Unknown]
  - Sleep disorder [Unknown]
